FAERS Safety Report 13228394 (Version 1)
Quarter: 2017Q1

REPORT INFORMATION
  Report Type: Spontaneous
  Country: US (occurrence: US)
  Receive Date: 20170213
  Receipt Date: 20170213
  Transmission Date: 20170428
  Serious: No
  Sender: FDA-Public Use
  Company Number: US-ROCHE-1841557

PATIENT
  Sex: Female

DRUGS (1)
  1. XOLAIR [Suspect]
     Active Substance: OMALIZUMAB
     Indication: URTICARIA
     Dosage: STARTED A COUPLE OF YEARS AGO
     Route: 058

REACTIONS (7)
  - Fatigue [Unknown]
  - Headache [Unknown]
  - Memory impairment [Unknown]
  - Dizziness [Unknown]
  - Dry eye [Unknown]
  - Ear pain [Unknown]
  - Dysphonia [Unknown]
